FAERS Safety Report 4752438-0 (Version None)
Quarter: 2005Q3

REPORT INFORMATION
  Report Type: 
  Country: None (occurrence: None)
  Receive Date: 20050825
  Receipt Date: 20050512
  Transmission Date: 20060218
  Serious: Yes (Hospitalization)
  Sender: FDA-Public Use
  Company Number: PT-GILEAD-2005-0008338

PATIENT
  Sex: Male
  Weight: 53 kg

DRUGS (5)
  1. VIREAD [Suspect]
     Indication: HIV INFECTION
     Route: 048
     Dates: start: 20041001, end: 20050408
  2. ATAZANAVIR [Interacting]
     Indication: HIV INFECTION
     Route: 048
     Dates: start: 20041001, end: 20050408
  3. ZIDOVUDINE [Concomitant]
     Indication: HIV INFECTION
     Route: 048
     Dates: start: 19990723, end: 20050408
  4. RITONAVIR [Concomitant]
     Indication: HIV INFECTION
     Route: 048
     Dates: start: 20041001, end: 20050408
  5. SULFAMETHOXAZOLE + TRIMETHOPRIM [Concomitant]
     Indication: HIV INFECTION
     Route: 048
     Dates: start: 19990101

REACTIONS (6)
  - ASTHENIA [None]
  - DRUG INTERACTION [None]
  - DRUG LEVEL INCREASED [None]
  - PRODUCTIVE COUGH [None]
  - RENAL FAILURE ACUTE [None]
  - VOMITING [None]
